FAERS Safety Report 16340838 (Version 3)
Quarter: 2020Q3

REPORT INFORMATION
  Report Type: Spontaneous
  Country: US (occurrence: US)
  Receive Date: 20190522
  Receipt Date: 20200930
  Transmission Date: 20201102
  Serious: Yes (Other)
  Sender: FDA-Public Use
  Company Number: US-GILEAD-2019-0408221

PATIENT
  Age: 46 Year
  Sex: Male
  Weight: 79.37 kg

DRUGS (11)
  1. NORVIR [Concomitant]
     Active Substance: RITONAVIR
  2. REYATAZ [Concomitant]
     Active Substance: ATAZANAVIR SULFATE
  3. CIPROFLOXACIN. [Concomitant]
     Active Substance: CIPROFLOXACIN
  4. TRUVADA [Suspect]
     Active Substance: EMTRICITABINE\TENOFOVIR DISOPROXIL FUMARATE
     Indication: HIV INFECTION
     Dosage: UNK
     Route: 048
     Dates: start: 2008, end: 2015
  5. JULUCA [Concomitant]
     Active Substance: DOLUTEGRAVIR SODIUM\RILPIVIRINE HYDROCHLORIDE
  6. VITAMIN D [COLECALCIFEROL] [Concomitant]
     Active Substance: CHOLECALCIFEROL
  7. HYDRODIURIL [Concomitant]
     Active Substance: HYDROCHLOROTHIAZIDE
  8. IBUPROFEN. [Concomitant]
     Active Substance: IBUPROFEN
  9. TRIUMEQ [Concomitant]
     Active Substance: ABACAVIR SULFATE\DOLUTEGRAVIR SODIUM\LAMIVUDINE
  10. NAPROXEN. [Concomitant]
     Active Substance: NAPROXEN
  11. AMLODIPINE [Concomitant]
     Active Substance: AMLODIPINE BESYLATE

REACTIONS (10)
  - Emotional distress [Not Recovered/Not Resolved]
  - Osteoporosis [Not Recovered/Not Resolved]
  - Anhedonia [Not Recovered/Not Resolved]
  - Anxiety [Not Recovered/Not Resolved]
  - Pain [Not Recovered/Not Resolved]
  - Forearm fracture [Not Recovered/Not Resolved]
  - Bone density decreased [Not Recovered/Not Resolved]
  - Economic problem [Not Recovered/Not Resolved]
  - General physical health deterioration [Unknown]
  - Quality of life decreased [Unknown]

NARRATIVE: CASE EVENT DATE: 20140314
